FAERS Safety Report 7475465-1 (Version None)
Quarter: 2011Q2

REPORT INFORMATION
  Report Type: 
  Country: None (occurrence: None)
  Receive Date: 20110512
  Receipt Date: 20110428
  Transmission Date: 20111010
  Serious: Yes (Other)
  Sender: FDA-Public Use
  Company Number: PHHY2011US37251

PATIENT
  Sex: Female

DRUGS (2)
  1. ZOMETA [Suspect]
     Dosage: ONCE EVERY 3 MONTHS
  2. ARIMIDEX [Concomitant]

REACTIONS (4)
  - OSTEONECROSIS OF JAW [None]
  - OSTEOMYELITIS [None]
  - GINGIVAL INFECTION [None]
  - PAIN [None]
